FAERS Safety Report 20662894 (Version 5)
Quarter: 2022Q3

REPORT INFORMATION
  Report Type: Report from Study
  Country: RU (occurrence: RU)
  Receive Date: 20220401
  Receipt Date: 20220916
  Transmission Date: 20221027
  Serious: Yes (Hospitalization)
  Sender: FDA-Public Use
  Company Number: RU-NOVARTISPH-NVSC2022RU028259

PATIENT
  Age: 69 Year
  Sex: Female
  Weight: 60 kg

DRUGS (5)
  1. RIBOCICLIB [Suspect]
     Active Substance: RIBOCICLIB
     Indication: Breast cancer
     Dosage: 400 MG, QD
     Route: 048
     Dates: start: 20210112
  2. LETROZOLE [Suspect]
     Active Substance: LETROZOLE
     Indication: Breast cancer
     Dosage: 2.5 MG, QD
     Route: 048
     Dates: start: 20210112
  3. APIXABAN [Concomitant]
     Active Substance: APIXABAN
     Indication: Prophylaxis
     Dosage: 2.5 MG, BID
     Route: 065
     Dates: start: 20211210
  4. PANCRELIPASE [Concomitant]
     Active Substance: PANCRELIPASE
     Indication: Gamma-glutamyltransferase increased
     Dosage: 25000 U, TID
     Route: 065
     Dates: start: 20211210
  5. FERRUM LEK [Concomitant]
     Indication: Anaemia
     Dosage: 100 MG, TID
     Route: 048
     Dates: start: 20211210

REACTIONS (3)
  - Pancreatitis chronic [Recovered/Resolved]
  - Chronic gastritis [Recovered/Resolved]
  - Pancreatitis chronic [Recovered/Resolved]

NARRATIVE: CASE EVENT DATE: 20220207
